FAERS Safety Report 9718472 (Version 2)
Quarter: 2014Q1

REPORT INFORMATION
  Report Type: Spontaneous
  Country: US (occurrence: US)
  Receive Date: 20131127
  Receipt Date: 20140107
  Transmission Date: 20141002
  Serious: Yes (Other)
  Sender: FDA-Public Use
  Company Number: US-PFIZER INC-2013334820

PATIENT
  Age: 51 Year
  Sex: Female

DRUGS (1)
  1. XELJANZ [Suspect]
     Indication: RHEUMATOID ARTHRITIS
     Dosage: 2000 MG, 2X/DAY
     Dates: start: 20131030

REACTIONS (3)
  - Incorrect dose administered [Unknown]
  - Tooth abscess [Recovered/Resolved]
  - Aphagia [Recovered/Resolved]
